FAERS Safety Report 9202930 (Version 5)
Quarter: 2013Q4

REPORT INFORMATION
  Report Type: Spontaneous
  Country: US (occurrence: US)
  Receive Date: 20130402
  Receipt Date: 20131209
  Transmission Date: 20140711
  Serious: No
  Sender: FDA-Public Use
  Company Number: US-BIOGENIDEC-2013BI028877

PATIENT
  Age: 36 Year
  Sex: Female

DRUGS (2)
  1. AVONEX [Suspect]
     Indication: MULTIPLE SCLEROSIS
     Route: 030
  2. AVONEX [Suspect]
     Indication: MULTIPLE SCLEROSIS
     Route: 030
     Dates: start: 20130319

REACTIONS (17)
  - Sluggishness [Unknown]
  - Restlessness [Unknown]
  - Cognitive disorder [Not Recovered/Not Resolved]
  - Speech disorder [Unknown]
  - Injection site haemorrhage [Unknown]
  - Post procedural complication [Recovered/Resolved]
  - Colonoscopy [Unknown]
  - Gastrointestinal disorder [Not Recovered/Not Resolved]
  - Incorrect route of drug administration [Recovered/Resolved]
  - Injection site bruising [Not Recovered/Not Resolved]
  - Skin exfoliation [Not Recovered/Not Resolved]
  - Multiple sclerosis relapse [Unknown]
  - Influenza like illness [Recovered/Resolved]
  - Pain [Unknown]
  - Fatigue [Unknown]
  - Myalgia [Recovered/Resolved]
  - Alopecia [Not Recovered/Not Resolved]
